FAERS Safety Report 7686986-0 (Version None)
Quarter: 2011Q3

REPORT INFORMATION
  Report Type: 
  Country: None (occurrence: None)
  Receive Date: 20110816
  Receipt Date: 20110815
  Transmission Date: 20111222
  Serious: No
  Sender: FDA-Public Use
  Company Number: US-PFIZER INC-2011165015

PATIENT
  Sex: Male
  Weight: 88.435 kg

DRUGS (7)
  1. CHANTIX [Suspect]
     Dosage: 1 MG, 2X/DAY
  2. CHANTIX [Suspect]
     Indication: SMOKING CESSATION THERAPY
     Dosage: 0.5 MG, 1X/DAY
     Route: 048
  3. GABAPENTIN [Concomitant]
     Dosage: UNK
  4. CHANTIX [Suspect]
     Dosage: UNK
  5. CHANTIX [Suspect]
     Dosage: UNK
  6. CHANTIX [Suspect]
     Dosage: UNK
  7. CHANTIX [Suspect]
     Dosage: UNK

REACTIONS (2)
  - DRUG INEFFECTIVE [None]
  - ANGER [None]
